FAERS Safety Report 7620460-2 (Version None)
Quarter: 2011Q3

REPORT INFORMATION
  Report Type: 
  Country: None (occurrence: None)
  Receive Date: 20110719
  Receipt Date: 20110714
  Transmission Date: 20111222
  Serious: Yes (Other)
  Sender: FDA-Public Use
  Company Number: US-PFIZER INC-2011159491

PATIENT
  Sex: Male

DRUGS (1)
  1. GEODON [Suspect]
     Indication: BIPOLAR DISORDER
     Dosage: UNK

REACTIONS (5)
  - FEAR [None]
  - EYE PAIN [None]
  - GLAUCOMA [None]
  - OPTIC NERVE DISORDER [None]
  - BLINDNESS TRANSIENT [None]
